FAERS Safety Report 8610464-5 (Version None)
Quarter: 2012Q3

REPORT INFORMATION
  Report Type: 
  Country: None (occurrence: None)
  Receive Date: 20120801
  Receipt Date: 20120724
  Transmission Date: 20120928
  Serious: Yes (Hospitalization)
  Sender: FDA-Public Use
  Company Number: 2012032929

PATIENT
  Sex: Female

DRUGS (2)
  1. BERINERT [Suspect]
     Indication: HEREDITARY ANGIOEDEMA
     Dosage: (INTRAVENOUS (NOT OTHERWISE SPECIFIED)), (500 IU PRN INTRAVENOUS (NOT OTHERWISE SPECIFIED))
     Route: 042
     Dates: start: 20120704
  2. BERINERT [Suspect]
     Indication: HEREDITARY ANGIOEDEMA
     Dosage: (INTRAVENOUS (NOT OTHERWISE SPECIFIED)), (500 IU PRN INTRAVENOUS (NOT OTHERWISE SPECIFIED))
     Route: 042
     Dates: start: 20101201

REACTIONS (3)
  - VOMITING [None]
  - OEDEMA [None]
  - ABDOMINAL PAIN [None]
